FAERS Safety Report 5036223-0 (Version None)
Quarter: 2006Q2

REPORT INFORMATION
  Report Type: 
  Country: None (occurrence: None)
  Receive Date: 20060601
  Receipt Date: 20051230
  Transmission Date: 20061013
  Serious: No
  Sender: FDA-Public Use
  Company Number: US200601000204

PATIENT
  Age: 45 Year
  Sex: Female

DRUGS (1)
  1. CYMBALTA [Suspect]
     Indication: CONFUSIONAL STATE
     Dosage: 30 MG, DAILY (1/D)
     Dates: start: 20051228

REACTIONS (13)
  - BRUXISM [None]
  - DEPRESSED MOOD [None]
  - DISTURBANCE IN ATTENTION [None]
  - DRY MOUTH [None]
  - ENERGY INCREASED [None]
  - FATIGUE [None]
  - HYPOAESTHESIA ORAL [None]
  - INITIAL INSOMNIA [None]
  - LETHARGY [None]
  - MIDDLE INSOMNIA [None]
  - NAUSEA [None]
  - RESTLESSNESS [None]
  - THINKING ABNORMAL [None]
